FAERS Safety Report 5127148-0 (Version None)
Quarter: 2006Q4

REPORT INFORMATION
  Report Type: 
  Country: None (occurrence: None)
  Receive Date: 20061010
  Receipt Date: 20060928
  Transmission Date: 20070319
  Serious: Yes (Hospitalization, Other)
  Sender: FDA-Public Use
  Company Number: 2006112983

PATIENT
  Age: 75 Year
  Sex: Male
  Weight: 56 kg

DRUGS (6)
  1. LIPITOR [Suspect]
     Indication: HYPERCHOLESTEROLAEMIA
     Dosage: SEE IMAGE
     Route: 048
     Dates: start: 20030725, end: 20030929
  2. LIPITOR [Suspect]
     Indication: HYPERLIPIDAEMIA
     Dosage: SEE IMAGE
     Route: 048
     Dates: start: 20030725, end: 20030929
  3. PLETAL [Suspect]
     Dosage: ORAL
     Route: 048
     Dates: start: 20060801
  4. ASPIRIN [Suspect]
     Indication: MYOCARDIAL INFARCTION
     Dosage: 1 IN 1 D, ORAL
     Route: 048
     Dates: start: 20060630
  5. PERINDOPRIL ERBUMINE [Suspect]
     Indication: HYPERTENSION
     Dosage: 1 IN 1 D, ORAL
     Route: 048
     Dates: start: 20060630
  6. SIGMART (NICORANDIL) [Suspect]
     Indication: MYOCARDIAL INFARCTION
     Dosage: 3 IN 1 D, ORAL
     Route: 048
     Dates: start: 20060630

REACTIONS (3)
  - ACUTE MYOCARDIAL INFARCTION [None]
  - BLOOD CREATINE PHOSPHOKINASE INCREASED [None]
  - HEPATITIS ACUTE [None]
